FAERS Safety Report 19276296 (Version 2)
Quarter: 2021Q2

REPORT INFORMATION
  Report Type: Report from Study
  Country: CA (occurrence: CA)
  Receive Date: 20210519
  Receipt Date: 20210602
  Transmission Date: 20210717
  Serious: Yes (Other)
  Sender: FDA-Public Use
  Company Number: CA-SHIRE-CA202024693

PATIENT
  Age: 45 Year
  Sex: Male

DRUGS (3)
  1. CUVITRU [Suspect]
     Active Substance: HUMAN IMMUNOGLOBULIN G
     Dosage: 8 GRAM, 1/WEEK
     Route: 065
     Dates: start: 20200304
  2. CUVITRU [Suspect]
     Active Substance: HUMAN IMMUNOGLOBULIN G
     Dosage: 6 GRAM, 1X/WEEK
     Route: 065
     Dates: start: 20200304
  3. CUVITRU [Suspect]
     Active Substance: HUMAN IMMUNOGLOBULIN G
     Indication: SECONDARY IMMUNODEFICIENCY
     Dosage: 8 UNK
     Route: 065
     Dates: start: 20200304

REACTIONS (6)
  - Induration [Unknown]
  - Respiratory tract infection [Unknown]
  - Pain [Unknown]
  - Incorrect drug administration rate [Recovered/Resolved]
  - Needle issue [Unknown]
  - Malaise [Unknown]
